FAERS Safety Report 7947160-3 (Version None)
Quarter: 2011Q4

REPORT INFORMATION
  Report Type: 
  Country: None (occurrence: None)
  Receive Date: 20111129
  Receipt Date: 20111121
  Transmission Date: 20120403
  Serious: Yes (Other)
  Sender: FDA-Public Use
  Company Number: CA-ASTRAZENECA-2011SE70758

PATIENT
  Age: 73 Year
  Sex: Female

DRUGS (2)
  1. AMILORIDE HYDROCHLORIDE [Concomitant]
     Route: 048
  2. ATACAND HCT [Suspect]
     Route: 048
     Dates: start: 20111001, end: 20111001

REACTIONS (4)
  - JOINT SWELLING [None]
  - SKIN TIGHTNESS [None]
  - GAIT DISTURBANCE [None]
  - OEDEMA PERIPHERAL [None]
